FAERS Safety Report 20613100 (Version 1)
Quarter: 2022Q1

REPORT INFORMATION
  Report Type: Spontaneous
  Country: US (occurrence: US)
  Receive Date: 20220318
  Receipt Date: 20220318
  Transmission Date: 20220423
  Serious: No
  Sender: FDA-Public Use
  Company Number: US-SA-SAC20220311001998

PATIENT
  Age: 62 Year
  Sex: Male

DRUGS (10)
  1. DUPIXENT [Suspect]
     Active Substance: DUPILUMAB
     Indication: Asthma
     Dosage: 300 MG, QOW
     Route: 058
     Dates: start: 20210722
  2. DICLOFENAC [Concomitant]
     Active Substance: DICLOFENAC
     Dosage: 1 %
  3. FLUOXETINE [Concomitant]
     Active Substance: FLUOXETINE HYDROCHLORIDE
  4. METFORMIN [Concomitant]
     Active Substance: METFORMIN HYDROCHLORIDE
  5. OMEPRAZOLE [Concomitant]
     Active Substance: OMEPRAZOLE
  6. OXYBUTYNIN [Concomitant]
     Active Substance: OXYBUTYNIN
  7. PREDNISONE [Concomitant]
     Active Substance: PREDNISONE
  8. QUETIAPINE [Concomitant]
     Active Substance: QUETIAPINE
  9. TRAZODONE [Concomitant]
     Active Substance: TRAZODONE HYDROCHLORIDE
  10. THERA-M [Concomitant]
     Dosage: UNK

REACTIONS (1)
  - Asthma [Recovered/Resolved]
